FAERS Safety Report 8425939-1 (Version None)
Quarter: 2012Q2

REPORT INFORMATION
  Report Type: 
  Country: None (occurrence: None)
  Receive Date: 20120611
  Receipt Date: 20120601
  Transmission Date: 20120825
  Serious: Yes (Hospitalization)
  Sender: FDA-Public Use
  Company Number: CN-JNJFOC-20120413534

PATIENT
  Sex: Male
  Weight: 52 kg

DRUGS (1)
  1. RISPERIDONE [Suspect]
     Indication: SCHIZOPHRENIA
     Route: 048
     Dates: start: 20110816, end: 20110914

REACTIONS (2)
  - LIVER FUNCTION TEST ABNORMAL [None]
  - DRUG-INDUCED LIVER INJURY [None]
